FAERS Safety Report 16721524 (Version 1)
Quarter: 2019Q3

REPORT INFORMATION
  Report Type: Spontaneous
  Country: US (occurrence: US)
  Receive Date: 20190820
  Receipt Date: 20190820
  Transmission Date: 20191005
  Serious: Yes (Other)
  Sender: FDA-Public Use
  Company Number: US-BIODELIVERY SCIENCES INTERNATIONAL-2018BDSI0513

PATIENT
  Age: 39 Year
  Sex: Female
  Weight: 52.21 kg

DRUGS (9)
  1. DULOXETINE HYDROCHLORIDE. [Concomitant]
     Active Substance: DULOXETINE HYDROCHLORIDE
     Indication: COMPLEX REGIONAL PAIN SYNDROME
     Route: 048
  2. CELECOXIB. [Concomitant]
     Active Substance: CELECOXIB
     Indication: COMPLEX REGIONAL PAIN SYNDROME
     Route: 048
  3. BUPRENORPHINE. [Suspect]
     Active Substance: BUPRENORPHINE
     Indication: COMPLEX REGIONAL PAIN SYNDROME
     Route: 002
     Dates: start: 20180921
  4. DULOXETINE HYDROCHLORIDE. [Concomitant]
     Active Substance: DULOXETINE HYDROCHLORIDE
     Indication: DEPRESSION
  5. METHOCARBAMOL. [Concomitant]
     Active Substance: METHOCARBAMOL
     Indication: MUSCLE RELAXANT THERAPY
  6. GABAPENTIN. [Concomitant]
     Active Substance: GABAPENTIN
     Indication: COMPLEX REGIONAL PAIN SYNDROME
     Route: 048
  7. FENTANYL. [Suspect]
     Active Substance: FENTANYL
     Indication: PAIN
     Dosage: UNKNOWN, UNKNOWN
     Route: 062
     Dates: end: 20180921
  8. METHOCARBAMOL. [Concomitant]
     Active Substance: METHOCARBAMOL
     Indication: COMPLEX REGIONAL PAIN SYNDROME
     Route: 048
  9. HYDROCODONE [Concomitant]
     Active Substance: HYDROCODONE
     Indication: COMPLEX REGIONAL PAIN SYNDROME
     Dosage: 5/325 MG
     Route: 048

REACTIONS (7)
  - Oral administration complication [Unknown]
  - Wrong technique in product usage process [Recovered/Resolved]
  - Chest discomfort [Recovered/Resolved]
  - Drug withdrawal syndrome [Recovered/Resolved]
  - Palpitations [Recovered/Resolved]
  - Therapeutic response decreased [Not Recovered/Not Resolved]
  - Product solubility abnormal [Unknown]

NARRATIVE: CASE EVENT DATE: 201809
